FAERS Safety Report 13062155 (Version 2)
Quarter: 2017Q2

REPORT INFORMATION
  Report Type: Report from Study
  Country: US (occurrence: US)
  Receive Date: 20161226
  Receipt Date: 20170428
  Transmission Date: 20170830
  Serious: Yes (Hospitalization, Congenital Anomaly)
  Sender: FDA-Public Use
  Company Number: US-GILEAD-2016-0250335

PATIENT
  Sex: Female

DRUGS (6)
  1. PRENATAL VITAMINS                  /02014401/ [Concomitant]
     Active Substance: VITAMINS
     Indication: VITAMIN SUPPLEMENTATION
     Route: 064
  2. AZT [Concomitant]
     Active Substance: ZIDOVUDINE
     Indication: PROPHYLAXIS
     Dosage: UNK
     Route: 064
     Dates: start: 20080130, end: 20080130
  3. EMTRICITABINE/TENOFOVIR DISOPROXIL FUMARATE [Suspect]
     Active Substance: EMTRICITABINE\TENOFOVIR DISOPROXIL FUMARATE
     Indication: HIV INFECTION
     Route: 064
  4. ATAZANAVIR [Concomitant]
     Active Substance: ATAZANAVIR
     Indication: HIV INFECTION
     Route: 064
  5. INFLUENZA VACCINE [Concomitant]
     Active Substance: INFLUENZA VIRUS VACCINE
     Indication: PROPHYLAXIS
     Route: 064
  6. NORVIR [Concomitant]
     Active Substance: RITONAVIR
     Indication: HIV INFECTION
     Route: 064

REACTIONS (4)
  - Eyelid ptosis [Unknown]
  - Rash [Unknown]
  - Temperature regulation disorder [Unknown]
  - Foetal exposure during pregnancy [Unknown]
